FAERS Safety Report 13973011 (Version 1)
Quarter: 2017Q3

REPORT INFORMATION
  Report Type: Spontaneous
  Country: US (occurrence: US)
  Receive Date: 20170915
  Receipt Date: 20170915
  Transmission Date: 20171128
  Serious: Yes (Other)
  Sender: FDA-Public Use
  Company Number: US-BRACCO-2017US04077

PATIENT
  Sex: Female

DRUGS (26)
  1. VITAMIN A                          /00056001/ [Concomitant]
     Active Substance: RETINOL
     Dosage: UNK
  2. VITAMIN E                          /00110501/ [Concomitant]
     Active Substance: TOCOPHEROL
     Dosage: UNK
  3. NIACIN. [Concomitant]
     Active Substance: NIACIN
     Dosage: UNK
  4. SPIRULINA                          /01514001/ [Concomitant]
     Active Substance: SPIRULINA
     Dosage: UNK
  5. AMINO ACIDS [Concomitant]
     Active Substance: AMINO ACIDS
     Dosage: UNK
  6. ZEOLITE [Concomitant]
     Dosage: UNK
  7. ZINC. [Concomitant]
     Active Substance: ZINC
     Dosage: UNK
  8. GLUTATHIONE [Concomitant]
     Active Substance: GLUTATHIONE
     Dosage: UNK
  9. RESVERATROL [Concomitant]
     Active Substance: DIETARY SUPPLEMENT\RESVERATROL
     Dosage: UNK
  10. CHARCOAL [Concomitant]
     Active Substance: ACTIVATED CHARCOAL
     Dosage: UNK
  11. GINSENG                            /01384001/ [Concomitant]
     Active Substance: ASIAN GINSENG
     Dosage: UNK
  12. MAGNESIUM [Concomitant]
     Active Substance: MAGNESIUM
     Dosage: UNK
  13. PYRIDOXAL PHOSPHATE [Concomitant]
     Active Substance: PYRIDOXAL PHOSPHATE
     Dosage: UNK
  14. SELENIUM [Concomitant]
     Active Substance: SELENIUM
     Dosage: UNK
  15. IRON [Concomitant]
     Active Substance: IRON
     Dosage: UNK
  16. MULTIHANCE [Suspect]
     Active Substance: GADOBENATE DIMEGLUMINE
     Indication: NUCLEAR MAGNETIC RESONANCE IMAGING
     Dosage: SINGLE DOSE IN 2010 AND 2012
     Dates: start: 2010, end: 2012
  17. VITAMIN B [Concomitant]
     Active Substance: VITAMIN B
     Dosage: UNK
  18. VITAMIN D [Concomitant]
     Active Substance: CHOLECALCIFEROL
     Dosage: UNK
  19. BETA CAROTENE [Concomitant]
     Dosage: UNK
  20. BENTONITE [Concomitant]
     Active Substance: BENTONITE
     Dosage: UNK
  21. ESSENTIAL OILS NOS [Concomitant]
     Dosage: UNK
  22. FISH OIL [Concomitant]
     Active Substance: FISH OIL
     Dosage: UNK
  23. VITAMIN C [Concomitant]
     Active Substance: ASCORBIC ACID
     Dosage: UNK
  24. COENZYME Q10 [Concomitant]
     Active Substance: UBIDECARENONE
     Dosage: UNK
  25. IODINE. [Concomitant]
     Active Substance: IODINE
     Dosage: UNK
  26. KELP                               /00082201/ [Concomitant]
     Active Substance: IODINE
     Dosage: UNK

REACTIONS (55)
  - Muscle twitching [Unknown]
  - Parosmia [Unknown]
  - Bone pain [Unknown]
  - Neoplasm skin [Unknown]
  - Skin lesion [Unknown]
  - Speech disorder [Unknown]
  - Hypoaesthesia [Unknown]
  - Paraesthesia [Unknown]
  - Pruritus [Unknown]
  - Muscle twitching [Unknown]
  - Adrenal disorder [Unknown]
  - Inflammation [Unknown]
  - Peau d^orange [Unknown]
  - Onychoclasis [Unknown]
  - Feeling cold [Unknown]
  - Pain [Unknown]
  - Sleep disorder [Unknown]
  - Thyroid hormones decreased [Unknown]
  - Injury [Unknown]
  - Visual impairment [Unknown]
  - Body temperature decreased [Unknown]
  - Tremor [Unknown]
  - Chills [Unknown]
  - Headache [Unknown]
  - Arthralgia [Unknown]
  - Fall [Unknown]
  - Muscle atrophy [Unknown]
  - Painful respiration [Unknown]
  - Clumsiness [Unknown]
  - Blood test abnormal [Unknown]
  - Pruritus generalised [Unknown]
  - Disturbance in attention [Unknown]
  - Dysgeusia [Unknown]
  - Muscle spasms [Unknown]
  - Impaired healing [Unknown]
  - Memory impairment [Unknown]
  - Multiple chemical sensitivity [Unknown]
  - Ocular icterus [Unknown]
  - Myalgia [Unknown]
  - Hypotension [Unknown]
  - Anxiety [Unknown]
  - Burning sensation [Unknown]
  - Yellow skin [Unknown]
  - Dizziness [Unknown]
  - Limb injury [Unknown]
  - Joint swelling [Unknown]
  - Alopecia [Unknown]
  - Dyspnoea [Unknown]
  - Cold sweat [Unknown]
  - Fatigue [Unknown]
  - Asthenia [Unknown]
  - Hypersensitivity [Unknown]
  - Hair metal test abnormal [Unknown]
  - Bone loss [Unknown]
  - Nausea [Unknown]

NARRATIVE: CASE EVENT DATE: 2010
